FAERS Safety Report 7763143-0 (Version None)
Quarter: 2011Q3

REPORT INFORMATION
  Report Type: 
  Country: None (occurrence: None)
  Receive Date: 20110920
  Receipt Date: 20110915
  Transmission Date: 20111222
  Serious: Yes (Hospitalization, Other)
  Sender: FDA-Public Use
  Company Number: US-PFIZER INC-2011115332

PATIENT
  Sex: Female

DRUGS (5)
  1. HYDROCHLOROTHIAZIDE [Concomitant]
     Indication: HYPERTENSION
     Dosage: UNK
     Dates: start: 20060101, end: 20100101
  2. CHANTIX [Suspect]
     Dosage: CONTINUING MONTH PACK
     Dates: start: 20080601, end: 20090101
  3. CHANTIX [Suspect]
     Dosage: STARTER PACK AND CONTINUING MONTH PACK
     Dates: start: 20071001, end: 20080201
  4. CHANTIX [Suspect]
     Indication: SMOKING CESSATION THERAPY
     Dosage: STARTER PACK AND CONTINUING MONTH PACK
     Dates: start: 20070201, end: 20070301
  5. NEURONTIN [Concomitant]
     Indication: MULTIPLE SCLEROSIS
     Dosage: UNK
     Dates: start: 20060101

REACTIONS (9)
  - HALLUCINATION [None]
  - DEPRESSION [None]
  - BIPOLAR DISORDER [None]
  - PSYCHOTIC DISORDER [None]
  - SUICIDE ATTEMPT [None]
  - ANXIETY [None]
  - HOMICIDAL IDEATION [None]
  - INTENTIONAL OVERDOSE [None]
  - POST-TRAUMATIC STRESS DISORDER [None]
